FAERS Safety Report 13934777 (Version 3)
Quarter: 2017Q4

REPORT INFORMATION
  Report Type: Spontaneous
  Country: JP (occurrence: JP)
  Receive Date: 20170905
  Receipt Date: 20171022
  Transmission Date: 20180320
  Serious: Yes (Other)
  Sender: FDA-Public Use
  Company Number: JP-TEVA-803885ACC

PATIENT
  Age: 7 Decade

DRUGS (5)
  1. BENDAMUTINE HYDROCHLORIDE [Suspect]
     Active Substance: BENDAMUSTINE HYDROCHLORIDE
     Dosage: /2/5WEEKS
     Route: 042
     Dates: start: 201709
  2. BENDAMUTINE HYDROCHLORIDE [Suspect]
     Active Substance: BENDAMUSTINE HYDROCHLORIDE
     Indication: B-CELL LYMPHOMA
     Dosage: /2/5WEEKS
     Route: 042
     Dates: start: 20170215, end: 20170216
  3. BENDAMUTINE HYDROCHLORIDE [Suspect]
     Active Substance: BENDAMUSTINE HYDROCHLORIDE
     Dosage: /2/5WEEKS
     Route: 042
     Dates: start: 20170712, end: 20170713
  4. RITUXIMAB. [Suspect]
     Active Substance: RITUXIMAB
     Indication: B-CELL LYMPHOMA
     Dosage: X1/4WEEKS
     Route: 041
     Dates: start: 20170214
  5. RITUXIMAB. [Suspect]
     Active Substance: RITUXIMAB
     Dosage: X1/4WEEKS
     Route: 041
     Dates: start: 20170713

REACTIONS (2)
  - Blood immunoglobulin G decreased [Not Recovered/Not Resolved]
  - Prescribed underdose [Unknown]

NARRATIVE: CASE EVENT DATE: 20170215
